FAERS Safety Report 8132836-8 (Version None)
Quarter: 2012Q1

REPORT INFORMATION
  Report Type: 
  Country: None (occurrence: None)
  Receive Date: 20120213
  Receipt Date: 20120131
  Transmission Date: 20120608
  Serious: Yes (Hospitalization)
  Sender: FDA-Public Use
  Company Number: FR-ELI_LILLY_AND_COMPANY-FR201111005329

PATIENT
  Age: 63 Year
  Sex: Female

DRUGS (4)
  1. FORTEO [Suspect]
     Dosage: 20 UG, QD
     Route: 058
     Dates: start: 20120126
  2. MORPHINE [Concomitant]
     Indication: PAIN
  3. FORTEO [Suspect]
     Indication: OSTEOPOROSIS
     Dosage: 20 UG, QD
     Route: 058
     Dates: start: 20110611, end: 20120125
  4. VOGALENE [Concomitant]

REACTIONS (7)
  - WEIGHT DECREASED [None]
  - VOMITING [None]
  - TONGUE ERUPTION [None]
  - NAUSEA [None]
  - MOUTH ULCERATION [None]
  - HYPERCALCAEMIA [None]
  - DIARRHOEA [None]
